FAERS Safety Report 10748353 (Version 2)
Quarter: 2015Q1

REPORT INFORMATION
  Report Type: Report from Study
  Country: DE (occurrence: None)
  Receive Date: 20150127
  Receipt Date: 20150226
  Transmission Date: 20150721
  Serious: Yes (Hospitalization)
  Sender: FDA-Public Use
  Company Number: DE-2015VAL000078

PATIENT
  Age: 81 Year
  Sex: Male
  Weight: 76 kg

DRUGS (10)
  1. XARELTO [Suspect]
     Active Substance: RIVAROXABAN
     Indication: ATRIAL FIBRILLATION
     Dates: start: 20131111
  2. CANAKINUMAB [Suspect]
     Active Substance: CANAKINUMAB
     Indication: CARDIOVASCULAR EVENT PROPHYLAXIS
     Dosage: CODE NOT BROKEN
     Route: 058
     Dates: start: 20130523
  3. ENALAPRIL [Concomitant]
     Active Substance: ENALAPRIL
  4. ISDN (ISOSORBIDE DINITRATE) [Concomitant]
     Active Substance: ISOSORBIDE DINITRATE
  5. ASPIRIN. [Suspect]
     Active Substance: ASPIRIN
     Indication: CORONARY ARTERY DISEASE
     Dates: start: 2000, end: 20141209
  6. FUROSEMIDE. [Suspect]
     Active Substance: FUROSEMIDE
     Indication: HYPERTENSION
  7. METOPROLOL TARTRATE. [Suspect]
     Active Substance: METOPROLOL TARTRATE
     Indication: CORONARY ARTERY DISEASE
     Dates: start: 20140107, end: 20141118
  8. METOPROLOL TARTRATE. [Suspect]
     Active Substance: METOPROLOL TARTRATE
     Indication: HYPERTENSION
     Dates: start: 20140107, end: 20141118
  9. MOLSIDOMINE [Concomitant]
     Active Substance: MOLSIDOMINE
  10. SIMVASTATIN. [Concomitant]
     Active Substance: SIMVASTATIN

REACTIONS (14)
  - Peripheral vascular disorder [None]
  - Atrial fibrillation [None]
  - Cardiovascular disorder [None]
  - Right ventricular failure [None]
  - Rib fracture [None]
  - Bronchitis [None]
  - Dizziness [None]
  - Joint dislocation [None]
  - Ejection fraction decreased [None]
  - Fluid overload [None]
  - Fall [None]
  - Hepatic cirrhosis [None]
  - Diverticulum [None]
  - Anaemia [None]

NARRATIVE: CASE EVENT DATE: 20141119
